FAERS Safety Report 9540374 (Version 2)
Quarter: 2013Q3

REPORT INFORMATION
  Report Type: Spontaneous
  Country: GB (occurrence: GB)
  Receive Date: 20130920
  Receipt Date: 20130920
  Transmission Date: 20140515
  Serious: No
  Sender: FDA-Public Use
  Company Number: PHFR2013GB005201

PATIENT
  Sex: Female

DRUGS (1)
  1. LAMISIL [Suspect]
     Indication: OFF LABEL USE
     Dosage: UNK UKN, UNK
     Route: 048

REACTIONS (1)
  - Incorrect drug administration duration [Unknown]
